FAERS Safety Report 9910746 (Version 3)
Quarter: 2014Q2

REPORT INFORMATION
  Report Type: Report from Study
  Country: US (occurrence: US)
  Receive Date: 20140219
  Receipt Date: 20140501
  Transmission Date: 20141212
  Serious: Yes (Disabling)
  Sender: FDA-Public Use
  Company Number: US-SA-2014SA016857

PATIENT
  Sex: Male

DRUGS (1)
  1. AUBAGIO [Suspect]
     Indication: MULTIPLE SCLEROSIS
     Route: 048

REACTIONS (10)
  - Pain [Recovering/Resolving]
  - Gait disturbance [Recovering/Resolving]
  - Burning sensation [Recovering/Resolving]
  - Nausea [Unknown]
  - Dizziness [Unknown]
  - Vomiting [Unknown]
  - Muscular weakness [Not Recovered/Not Resolved]
  - Disability [Not Recovered/Not Resolved]
  - Asthenia [Unknown]
  - Fall [Unknown]
